FAERS Safety Report 18001406 (Version 1)
Quarter: 2020Q3

REPORT INFORMATION
  Report Type: Spontaneous
  Country: CA (occurrence: CA)
  Receive Date: 20200709
  Receipt Date: 20200709
  Transmission Date: 20201103
  Serious: Yes (Death, Life-Threatening, Hospitalization, Disabling, Other)
  Sender: FDA-Public Use
  Company Number: CA-TEVA-2020-CA-1797721

PATIENT
  Age: 57 Year
  Sex: Male
  Weight: 111 kg

DRUGS (3)
  1. TACROLIMUS. [Concomitant]
     Active Substance: TACROLIMUS
  2. FLUDARABINE PHOSPHATE FOR INJECTION [Suspect]
     Active Substance: FLUDARABINE PHOSPHATE
     Indication: ALLOGENIC STEM CELL TRANSPLANTATION
     Dosage: 64 MILLIGRAM DAILY;
     Route: 042
  3. FLUDARABINE PHOSPHATE FOR INJECTION [Suspect]
     Active Substance: FLUDARABINE PHOSPHATE
     Dosage: 64 MILLIGRAM DAILY;
     Route: 042

REACTIONS (5)
  - Disease progression [Fatal]
  - Colitis ischaemic [Fatal]
  - Coordination abnormal [Fatal]
  - Dysarthria [Fatal]
  - Endotracheal intubation [Fatal]
